FAERS Safety Report 26145711 (Version 1)
Quarter: 2025Q4

REPORT INFORMATION
  Report Type: Spontaneous
  Country: US (occurrence: US)
  Receive Date: 20251211
  Receipt Date: 20251211
  Transmission Date: 20260118
  Serious: No
  Sender: ABBVIE
  Company Number: US-ABBVIE-6586099

PATIENT
  Sex: Female

DRUGS (1)
  1. LINZESS [Suspect]
     Active Substance: LINACLOTIDE
     Indication: Gastrointestinal motility disorder
     Dosage: FORM STRENGTH: 290 MICROGRAM
     Route: 048

REACTIONS (2)
  - Drug ineffective [Unknown]
  - Product quality issue [Not Recovered/Not Resolved]
